FAERS Safety Report 7099957-2 (Version None)
Quarter: 2010Q4

REPORT INFORMATION
  Report Type: 
  Country: None (occurrence: None)
  Receive Date: 20101112
  Receipt Date: 20101103
  Transmission Date: 20110411
  Serious: Yes (Other)
  Sender: FDA-Public Use
  Company Number: CA-BAYER-201040252NA

PATIENT
  Age: 63 Year
  Sex: Male

DRUGS (5)
  1. MAGNEVIST [Suspect]
     Indication: PRODUCT USED FOR UNKNOWN INDICATION
     Route: 042
  2. MAGNEVIST [Suspect]
     Dosage: TOTAL DAILY DOSE: 19 ML
     Route: 042
  3. MAGNEVIST [Suspect]
     Dosage: TOTAL DAILY DOSE: 24 ML
  4. OPTIMARK [Suspect]
     Indication: PRODUCT USED FOR UNKNOWN INDICATION
     Dosage: TOTAL DAILY DOSE: 20 ML
     Route: 042
  5. OPTIMARK [Suspect]
     Dosage: TOTAL DAILY DOSE: 45 ML

REACTIONS (2)
  - INTERMITTENT CLAUDICATION [None]
  - NEPHROGENIC SYSTEMIC FIBROSIS [None]
